FAERS Safety Report 19645751 (Version 2)
Quarter: 2021Q3

REPORT INFORMATION
  Report Type: Spontaneous
  Country: US (occurrence: US)
  Receive Date: 20210802
  Receipt Date: 20210809
  Transmission Date: 20211014
  Serious: No
  Sender: FDA-Public Use
  Company Number: US-TEVA-2021-US-1934486

PATIENT
  Age: 71 Year
  Sex: Female

DRUGS (2)
  1. ATENOLOL TEVA [Suspect]
     Active Substance: ATENOLOL
     Route: 065
     Dates: start: 2020
  2. ATENOLOL TEVA [Suspect]
     Active Substance: ATENOLOL
     Route: 065
     Dates: start: 202102

REACTIONS (7)
  - Fatigue [Not Recovered/Not Resolved]
  - Adverse drug reaction [Unknown]
  - Dizziness [Not Recovered/Not Resolved]
  - Product design issue [Unknown]
  - Nausea [Not Recovered/Not Resolved]
  - Product dispensing issue [Unknown]
  - Wrong technique in product usage process [Unknown]

NARRATIVE: CASE EVENT DATE: 202102
